FAERS Safety Report 7082311-7 (Version None)
Quarter: 2010Q4

REPORT INFORMATION
  Report Type: 
  Country: None (occurrence: None)
  Receive Date: 20101104
  Receipt Date: 20101021
  Transmission Date: 20110411
  Serious: Yes (Other)
  Sender: FDA-Public Use
  Company Number: TH-RANBAXY-2010RR-38939

PATIENT
  Age: 35 Year
  Sex: Female

DRUGS (1)
  1. TOPIRAMATE [Suspect]
     Indication: MIGRAINE WITHOUT AURA
     Dosage: 50 MG, UNK

REACTIONS (6)
  - ASTHENIA [None]
  - DECREASED APPETITE [None]
  - DEPRESSION [None]
  - FEELING OF DESPAIR [None]
  - FEELINGS OF WORTHLESSNESS [None]
  - SUICIDAL IDEATION [None]
